FAERS Safety Report 21132108 (Version 1)
Quarter: 2022Q3

REPORT INFORMATION
  Report Type: Spontaneous
  Country: US (occurrence: US)
  Receive Date: 20220726
  Receipt Date: 20220726
  Transmission Date: 20221027
  Serious: No
  Sender: FDA-Public Use
  Company Number: US-009507513-2207USA006508

PATIENT
  Sex: Male

DRUGS (4)
  1. KEYTRUDA [Suspect]
     Active Substance: PEMBROLIZUMAB
     Indication: Squamous cell carcinoma
     Dosage: DOSE UNKNOWN, EVERY 21 DAYS, ROUTE: INFUSION
     Dates: start: 20220505, end: 2022
  2. KEYTRUDA [Suspect]
     Active Substance: PEMBROLIZUMAB
     Dosage: DOSE UNKNOWN, EVERY 21 DAYS, ROUTE: INFUSION, KEYTRUDA ONLY
     Dates: start: 20220707
  3. CARBOPLATIN [Suspect]
     Active Substance: CARBOPLATIN
     Indication: Squamous cell carcinoma
     Dosage: UNK
     Dates: start: 20220505, end: 2022
  4. PACLITAXEL [Suspect]
     Active Substance: PACLITAXEL
     Indication: Squamous cell carcinoma
     Dosage: UNK
     Dates: start: 20220505, end: 2022

REACTIONS (2)
  - Rash pruritic [Not Recovered/Not Resolved]
  - Sinus operation [Unknown]

NARRATIVE: CASE EVENT DATE: 20220527
